FAERS Safety Report 9684978 (Version 1)
Quarter: 2013Q4

REPORT INFORMATION
  Report Type: Spontaneous
  Country: US (occurrence: US)
  Receive Date: 20131113
  Receipt Date: 20131113
  Transmission Date: 20140711
  Serious: Yes (Other)
  Sender: FDA-Public Use
  Company Number: US-BIOGENIDEC-2013BI108821

PATIENT
  Sex: Female

DRUGS (8)
  1. TECFIDERA [Suspect]
     Indication: MULTIPLE SCLEROSIS
     Route: 048
  2. SOLU-MEDROL [Concomitant]
  3. LOSARTAN POT [Concomitant]
     Route: 048
  4. GABAPENTIN [Concomitant]
  5. NUVIGIL [Concomitant]
  6. XANAX [Concomitant]
  7. NASONEX [Concomitant]
  8. NAPROXEN SODIUM [Concomitant]

REACTIONS (3)
  - Ovarian mass [Unknown]
  - Fatigue [Unknown]
  - Accidental overdose [Unknown]
